FAERS Safety Report 6764672-9 (Version None)
Quarter: 2010Q2

REPORT INFORMATION
  Report Type: 
  Country: None (occurrence: None)
  Receive Date: 20100610
  Receipt Date: 20100603
  Transmission Date: 20101027
  Serious: Yes (Death, Other)
  Sender: FDA-Public Use
  Company Number: US-BAXTER-2010BH012890

PATIENT
  Age: 71 Year
  Sex: Female

DRUGS (4)
  1. DIANEAL [Suspect]
     Indication: PERITONEAL DIALYSIS
     Route: 033
     Dates: start: 20100501
  2. DIANEAL [Suspect]
     Indication: RENAL FAILURE CHRONIC
     Route: 033
     Dates: start: 20100501
  3. DIANEAL [Suspect]
     Route: 033
     Dates: start: 20100101, end: 20100501
  4. DIANEAL [Suspect]
     Route: 033
     Dates: start: 20100101, end: 20100501

REACTIONS (3)
  - DEATH [None]
  - PERITONEAL CLOUDY EFFLUENT [None]
  - PROCEDURAL PAIN [None]
